FAERS Safety Report 8112586-4 (Version None)
Quarter: 2012Q1

REPORT INFORMATION
  Report Type: 
  Country: None (occurrence: None)
  Receive Date: 20120203
  Receipt Date: 20120130
  Transmission Date: 20120608
  Serious: Yes (Other)
  Sender: FDA-Public Use
  Company Number: US-PFIZER INC-2012025136

PATIENT
  Sex: Male

DRUGS (1)
  1. LYRICA [Suspect]
     Indication: OEDEMA PERIPHERAL
     Dosage: 150 MG, UNK

REACTIONS (3)
  - POST HERPETIC NEURALGIA [None]
  - HERPES ZOSTER [None]
  - OEDEMA PERIPHERAL [None]
